FAERS Safety Report 6596628-3 (Version None)
Quarter: 2010Q1

REPORT INFORMATION
  Report Type: 
  Country: None (occurrence: None)
  Receive Date: 20100223
  Receipt Date: 20100215
  Transmission Date: 20100710
  Serious: Yes (Other)
  Sender: FDA-Public Use
  Company Number: FR-PFIZER INC-2009306136

PATIENT
  Age: 59 Year
  Sex: Female
  Weight: 90 kg

DRUGS (10)
  1. TAHOR [Suspect]
     Indication: HYPERTENSION
     Dosage: 10 MG, UNK
     Dates: start: 20090801
  2. TEMERIT [Concomitant]
     Indication: HYPERTENSION
     Dosage: 5 MG, 1X/DAY
     Route: 048
     Dates: start: 20070101
  3. AMLOR [Concomitant]
     Dosage: UNK
  4. FLECAINIDE ACETATE [Concomitant]
     Indication: ARRHYTHMIA
     Dosage: 100 MG, 1X/DAY
     Route: 048
     Dates: start: 20070101
  5. KARDEGIC [Concomitant]
     Dosage: UNK
  6. METHOCARBAMOL [Concomitant]
     Indication: MUSCLE SPASMS
     Dosage: 2 G, DAILY IN 4 INTAKES
     Route: 048
     Dates: start: 20080101
  7. CALCIPRAT [Concomitant]
     Dosage: UNK
  8. DI-ANTALVIC [Concomitant]
     Dosage: 6 PER DAY
     Dates: start: 20070101
  9. ACETAMINOPHEN WITH PROPOXYPHENE HCL TAB [Concomitant]
     Indication: ARTHRALGIA
     Dosage: 30/400 MG, 6 PER DAY IN 3 INTAKES
     Route: 048
     Dates: start: 20070101
  10. ACETAMINOPHEN WITH PROPOXYPHENE HCL TAB [Concomitant]
     Indication: OSTEOARTHRITIS

REACTIONS (1)
  - GAMMA-GLUTAMYLTRANSFERASE INCREASED [None]
